FAERS Safety Report 14207421 (Version 3)
Quarter: 2017Q4

REPORT INFORMATION
  Report Type: Spontaneous
  Country: US (occurrence: US)
  Receive Date: 20171121
  Receipt Date: 20171205
  Transmission Date: 20180321
  Serious: Yes (Hospitalization)
  Sender: FDA-Public Use
  Company Number: US-PHARMING GROUP N.V.-PHAUS2017000223

PATIENT

DRUGS (1)
  1. RUCONEST [Suspect]
     Active Substance: HUMAN C1-ESTERASE INHIBITOR
     Indication: HEREDITARY ANGIOEDEMA
     Dosage: 2950 IU, TWICE WEEKLY
     Route: 042
     Dates: start: 20171030

REACTIONS (3)
  - Off label use [Not Recovered/Not Resolved]
  - Hospitalisation [Unknown]
  - Vascular access complication [Recovered/Resolved]

NARRATIVE: CASE EVENT DATE: 2017
